FAERS Safety Report 5332160-2 (Version None)
Quarter: 2007Q2

REPORT INFORMATION
  Report Type: 
  Country: None (occurrence: None)
  Receive Date: 20070523
  Receipt Date: 20070514
  Transmission Date: 20071010
  Serious: Yes (Other)
  Sender: FDA-Public Use
  Company Number: CA-ASTRAZENECA-2007UW11277

PATIENT
  Age: 48 Year
  Sex: Female

DRUGS (1)
  1. NOLVADEX [Suspect]
     Indication: BREAST CANCER
     Route: 048
     Dates: start: 20050101

REACTIONS (8)
  - BLOOD PRESSURE INCREASED [None]
  - BLOOD TRIGLYCERIDES INCREASED [None]
  - CHEST PAIN [None]
  - DYSSTASIA [None]
  - HYPOAESTHESIA [None]
  - PAIN IN EXTREMITY [None]
  - TRANSIENT ISCHAEMIC ATTACK [None]
  - VISUAL DISTURBANCE [None]
